FAERS Safety Report 7062886-4 (Version None)
Quarter: 2010Q4

REPORT INFORMATION
  Report Type: 
  Country: None (occurrence: None)
  Receive Date: 20101026
  Receipt Date: 20100206
  Transmission Date: 20110411
  Serious: No
  Sender: FDA-Public Use
  Company Number: US-PFIZER INC-2010016655

PATIENT
  Sex: Male
  Weight: 87.075 kg

DRUGS (4)
  1. LIPITOR [Suspect]
     Indication: BLOOD CHOLESTEROL INCREASED
     Dosage: 10 MG, DAILY
  2. VALSARTAN [Concomitant]
     Indication: HYPERTENSION
     Dosage: 80 MG, UNK
  3. PROTONIX [Concomitant]
     Dosage: UNK
  4. IBUPROFEN [Concomitant]
     Indication: ARTHRALGIA
     Dosage: UNK

REACTIONS (4)
  - ARTHRALGIA [None]
  - MUSCLE DISORDER [None]
  - PAIN [None]
  - TENDERNESS [None]
